FAERS Safety Report 4461970-9 (Version None)
Quarter: 2004Q3

REPORT INFORMATION
  Report Type: 
  Country: None (occurrence: None)
  Receive Date: 20040923
  Receipt Date: 20040913
  Transmission Date: 20050211
  Serious: Yes (Hospitalization)
  Sender: FDA-Public Use
  Company Number: 2003189653AT

PATIENT
  Age: 52 Year
  Sex: Male

DRUGS (1)
  1. CLINDAMYCIN HCL [Suspect]
     Indication: TOOTH INFECTION
     Dosage: 300 MG, TID, ORAL
     Route: 048
     Dates: start: 20030916

REACTIONS (12)
  - ACCIDENTAL EXPOSURE [None]
  - APHONIA [None]
  - BURNING SENSATION [None]
  - FOREIGN BODY TRAUMA [None]
  - HOARSENESS [None]
  - LARYNGEAL INJURY [None]
  - LARYNGEAL ULCERATION [None]
  - MUCOSAL EROSION [None]
  - NAUSEA [None]
  - NECROSIS [None]
  - PAIN [None]
  - VOCAL CORD DISORDER [None]
